FAERS Safety Report 8389467-4 (Version None)
Quarter: 2012Q2

REPORT INFORMATION
  Report Type: 
  Country: None (occurrence: None)
  Receive Date: 20120528
  Receipt Date: 20120515
  Transmission Date: 20120825
  Serious: Yes (Hospitalization, Other)
  Sender: FDA-Public Use
  Company Number: JP-ELI_LILLY_AND_COMPANY-JP201205001821

PATIENT
  Age: 80 Year
  Sex: Female

DRUGS (1)
  1. FORTEO [Suspect]
     Indication: BONE CANCER METASTATIC
     Dosage: 20 UG, QD
     Route: 058
     Dates: start: 20120215, end: 20120307

REACTIONS (2)
  - MULTIPLE MYELOMA [None]
  - OFF LABEL USE [None]
